FAERS Safety Report 13926775 (Version 1)
Quarter: 2017Q3

REPORT INFORMATION
  Report Type: Report from Study
  Country: FR (occurrence: FR)
  Receive Date: 20170901
  Receipt Date: 20170901
  Transmission Date: 20171127
  Serious: Yes (Other)
  Sender: FDA-Public Use
  Company Number: FR-ROCHE-1987168

PATIENT

DRUGS (1)
  1. ALTEPLASE. [Suspect]
     Active Substance: ALTEPLASE
     Indication: PULMONARY EMBOLISM
     Dosage: PATIENTS WEIGHING }65 KG WERE GIVEN 10 MG; FOLLOWED BY 90 MG OVER 2 H?PATIENTS WEIGHING {/=65 KG WER
     Route: 040

REACTIONS (5)
  - Pulmonary embolism [Unknown]
  - Haematuria [Unknown]
  - Retroperitoneal haemorrhage [Unknown]
  - Haemorrhage [Unknown]
  - Pericardial haemorrhage [Unknown]
